FAERS Safety Report 14580319 (Version 1)
Quarter: 2018Q1

REPORT INFORMATION
  Report Type: Spontaneous
  Country: IT (occurrence: IT)
  Receive Date: 20180228
  Receipt Date: 20180228
  Transmission Date: 20180509
  Serious: Yes (Hospitalization)
  Sender: FDA-Public Use
  Company Number: IT-CIPLA LTD.-2018IT06741

PATIENT

DRUGS (4)
  1. TEGRETOL [Suspect]
     Active Substance: CARBAMAZEPINE
     Indication: SUICIDE ATTEMPT
     Dosage: 90 DF, IN TOTAL
     Route: 048
     Dates: start: 20170208, end: 20170209
  2. DEPAKIN CHRONO                     /00228502/ [Suspect]
     Active Substance: VALPROATE SODIUM
     Indication: SUICIDE ATTEMPT
     Dosage: 20 DF, IN TOTAL
     Route: 048
     Dates: start: 20170208, end: 20170209
  3. SEROQUEL [Suspect]
     Active Substance: QUETIAPINE FUMARATE
     Indication: SUICIDE ATTEMPT
     Dosage: 50 DF, IN TOTAL
     Route: 048
     Dates: start: 20170208, end: 20170209
  4. ESCITALOPRAM [Suspect]
     Active Substance: ESCITALOPRAM OXALATE
     Indication: SUICIDE ATTEMPT
     Dosage: 10 DF, IN TOTAL
     Route: 048
     Dates: start: 20170208, end: 20170209

REACTIONS (4)
  - Metabolic disorder [Recovered/Resolved]
  - Lactic acidosis [Recovered/Resolved]
  - Neurological decompensation [Recovered/Resolved]
  - Drug abuse [Recovered/Resolved]

NARRATIVE: CASE EVENT DATE: 20170209
